FAERS Safety Report 23636577 (Version 1)
Quarter: 2024Q1

REPORT INFORMATION
  Report Type: Spontaneous
  Country: US (occurrence: US)
  Receive Date: 20240315
  Receipt Date: 20240315
  Transmission Date: 20240410
  Serious: Yes (Other)
  Sender: FDA-Public Use
  Company Number: US-COHERUS BIOSCIENCES, Inc.-2024-COH-US000140

PATIENT

DRUGS (20)
  1. PEGFILGRASTIM [Suspect]
     Active Substance: PEGFILGRASTIM
     Indication: Prophylaxis
     Dosage: FIRST CYCLE
  2. PEGFILGRASTIM [Suspect]
     Active Substance: PEGFILGRASTIM
     Dosage: SECOND CYCLE
  3. ETOPOSIDE [Suspect]
     Active Substance: ETOPOSIDE
     Indication: B-cell lymphoma
     Dosage: FIRST CYCLE
  4. ETOPOSIDE [Suspect]
     Active Substance: ETOPOSIDE
     Dosage: SECOND CYCLE; 20% INCREASE IN ETOPOSIDE
  5. ETOPOSIDE [Suspect]
     Active Substance: ETOPOSIDE
     Dosage: COMPLETE 4 MORE CYCLES
  6. PREDNISONE [Suspect]
     Active Substance: PREDNISONE
     Indication: B-cell lymphoma
     Dosage: FIRST CYCLE
  7. PREDNISONE [Suspect]
     Active Substance: PREDNISONE
     Dosage: SECOND CYCLE
  8. PREDNISONE [Suspect]
     Active Substance: PREDNISONE
     Dosage: COMPLETED 4 MORE CYCLES
  9. VINCRISTINE SULFATE [Suspect]
     Active Substance: VINCRISTINE SULFATE
     Indication: B-cell lymphoma
     Dosage: FIRST CYCLE
  10. VINCRISTINE SULFATE [Suspect]
     Active Substance: VINCRISTINE SULFATE
     Dosage: SECOND CYCLE
  11. VINCRISTINE SULFATE [Suspect]
     Active Substance: VINCRISTINE SULFATE
     Dosage: COMPLETED 4 MORE CYCLES
  12. CYCLOPHOSPHAMIDE [Suspect]
     Active Substance: CYCLOPHOSPHAMIDE
     Indication: B-cell lymphoma
     Dosage: FIRST CYCLE
  13. CYCLOPHOSPHAMIDE [Suspect]
     Active Substance: CYCLOPHOSPHAMIDE
     Dosage: 20% INCREASE CYCLOPHOSPHAMIDE
  14. CYCLOPHOSPHAMIDE [Suspect]
     Active Substance: CYCLOPHOSPHAMIDE
     Dosage: COMPLETED 4 MORE CYCLES
  15. DOXORUBICIN [Suspect]
     Active Substance: DOXORUBICIN
     Indication: B-cell lymphoma
     Dosage: FIRST CYCLE
  16. DOXORUBICIN [Suspect]
     Active Substance: DOXORUBICIN
     Dosage: 20% INCREASE IN CYCLOPHOSPHAMIDE
  17. DOXORUBICIN [Suspect]
     Active Substance: DOXORUBICIN
     Dosage: COMPLETED 4 MORE CYCLES
  18. RITUXIMAB [Suspect]
     Active Substance: RITUXIMAB
     Indication: B-cell lymphoma
     Dosage: FIRST CYCLE
  19. RITUXIMAB [Suspect]
     Active Substance: RITUXIMAB
     Dosage: SECOND CYCLE
  20. RITUXIMAB [Suspect]
     Active Substance: RITUXIMAB
     Dosage: COMPLETED 4 MORE CYCLES

REACTIONS (1)
  - Fat embolism syndrome [Recovering/Resolving]
